FAERS Safety Report 10168250 (Version 1)
Quarter: 2014Q2

REPORT INFORMATION
  Report Type: Report from Study
  Country: US (occurrence: US)
  Receive Date: 20140512
  Receipt Date: 20140512
  Transmission Date: 20141212
  Serious: Yes (Life-Threatening, Hospitalization)
  Sender: FDA-Public Use
  Company Number: US-MYLANLABS-2014S1010384

PATIENT
  Age: 39 Year
  Sex: Male

DRUGS (4)
  1. DILTIAZEM [Suspect]
     Dosage: EMPTY PILL BOTTLES FOUND
     Route: 065
  2. METOPROLOL [Suspect]
     Dosage: EMPTY PILL BOTTLES FOUND
     Route: 065
  3. LIPID EMULSION [Suspect]
     Indication: CARDIAC ARREST
     Dosage: 20% UNKNOWN AMOUNT
     Route: 042
  4. EPINEPHRINE [Concomitant]
     Indication: CARDIAC ARREST
     Dosage: 2MG TOTAL
     Route: 042

REACTIONS (4)
  - Cardiac arrest [Recovered/Resolved with Sequelae]
  - Brain oedema [Not Recovered/Not Resolved]
  - Hyperlipidaemia [Not Recovered/Not Resolved]
  - Laboratory test interference [Not Recovered/Not Resolved]
